FAERS Safety Report 12555423 (Version 1)
Quarter: 2016Q3

REPORT INFORMATION
  Report Type: Spontaneous
  Country: US (occurrence: None)
  Receive Date: 20160713
  Receipt Date: 20160713
  Transmission Date: 20161109
  Serious: Yes (Death)
  Sender: FDA-Public Use
  Company Number: None

PATIENT
  Age: 18 Year
  Sex: Male
  Weight: 48.08 kg

DRUGS (1)
  1. FLUOXETINE, 20MG ELI LILLY [Suspect]
     Active Substance: FLUOXETINE HYDROCHLORIDE
     Indication: ABNORMAL BEHAVIOUR
     Dosage: IN THE MORNING
     Route: 048

REACTIONS (1)
  - Cardio-respiratory arrest [None]

NARRATIVE: CASE EVENT DATE: 20140619
